FAERS Safety Report 24992135 (Version 1)
Quarter: 2025Q1

REPORT INFORMATION
  Report Type: Spontaneous
  Country: US (occurrence: None)
  Receive Date: 20250220
  Receipt Date: 20250220
  Transmission Date: 20250408
  Serious: No
  Sender: ETHYPHARM
  Company Number: US-MLMSERVICE-20241030-PI245510-00073-1

PATIENT

DRUGS (2)
  1. BUPRENORPHINE HYDROCHLORIDE [Suspect]
     Active Substance: BUPRENORPHINE HYDROCHLORIDE
     Indication: Drug use disorder
  2. BUPRENORPHINE HYDROCHLORIDE [Suspect]
     Active Substance: BUPRENORPHINE HYDROCHLORIDE
     Indication: Drug use disorder
     Dosage: THREE MONTHS AFTER INITIAL PRESENTATION, BUPRENORPHINE DOSE WAS 4 MG DAILY

REACTIONS (1)
  - Oesophageal motility disorder [Recovered/Resolved]
